FAERS Safety Report 14249791 (Version 1)
Quarter: 2017Q4

REPORT INFORMATION
  Report Type: Spontaneous
  Country: GB (occurrence: GB)
  Receive Date: 20171204
  Receipt Date: 20171204
  Transmission Date: 20180321
  Serious: Yes (Disabling)
  Sender: FDA-Public Use
  Company Number: None

PATIENT
  Age: 34 Year
  Sex: Male
  Weight: 70.2 kg

DRUGS (2)
  1. VENTOLIN ASTHMA INHALER [Concomitant]
  2. FUCIBET (UK NAME) [Suspect]
     Active Substance: BETAMETHASONE\FUSIDIC ACID
     Indication: ECZEMA
     Route: 061
     Dates: start: 19970101, end: 20150907

REACTIONS (7)
  - Secretion discharge [None]
  - Eczema [None]
  - Therapy cessation [None]
  - Steroid withdrawal syndrome [None]
  - Skin ulcer [None]
  - General physical health deterioration [None]
  - Scab [None]
